FAERS Safety Report 22734736 (Version 2)
Quarter: 2023Q4

REPORT INFORMATION
  Report Type: Spontaneous
  Country: US (occurrence: US)
  Receive Date: 20230721
  Receipt Date: 20231026
  Transmission Date: 20240109
  Serious: No
  Sender: FDA-Public Use
  Company Number: US-SA-SAC20230719000193

PATIENT
  Age: 42 Year
  Sex: Female
  Weight: 62.59 kg

DRUGS (13)
  1. DUPIXENT [Suspect]
     Active Substance: DUPILUMAB
     Indication: Dermatitis allergic
     Dosage: 300 MG, QOW
     Route: 058
     Dates: start: 20191219
  2. DUPIXENT [Suspect]
     Active Substance: DUPILUMAB
     Indication: Dermatitis atopic
  3. ALBUTEROL SULFATE [Concomitant]
     Active Substance: ALBUTEROL SULFATE
  4. ESCITALOPRAM [Concomitant]
     Active Substance: ESCITALOPRAM OXALATE
  5. DESLORATADINE [Concomitant]
     Active Substance: DESLORATADINE
  6. CYCLOSPORINE [Concomitant]
     Active Substance: CYCLOSPORINE
  7. PRAVASTATIN [Concomitant]
     Active Substance: PRAVASTATIN
  8. DULERA [Concomitant]
     Active Substance: FORMOTEROL FUMARATE DIHYDRATE\MOMETASONE FUROATE
  9. MOMETASONE FUROATE [Concomitant]
     Active Substance: MOMETASONE FUROATE
  10. AZELASTINE [Concomitant]
     Active Substance: AZELASTINE
  11. AZELAIC ACID [Concomitant]
     Active Substance: AZELAIC ACID
  12. HALOBETASOL PROPIONATE [Concomitant]
     Active Substance: HALOBETASOL PROPIONATE
  13. ROSUVASTATIN CALCIUM [Concomitant]
     Active Substance: ROSUVASTATIN CALCIUM

REACTIONS (5)
  - Skin irritation [Not Recovered/Not Resolved]
  - Scar [Not Recovered/Not Resolved]
  - Dermatitis contact [Unknown]
  - Skin weeping [Unknown]
  - Rash [Unknown]

NARRATIVE: CASE EVENT DATE: 20230101
